FAERS Safety Report 18180709 (Version 1)
Quarter: 2020Q3

REPORT INFORMATION
  Report Type: Spontaneous
  Country: CN (occurrence: CN)
  Receive Date: 20200821
  Receipt Date: 20200821
  Transmission Date: 20201103
  Serious: Yes (Other)
  Sender: FDA-Public Use
  Company Number: CN-BAYER-2020-173117

PATIENT
  Sex: Male

DRUGS (4)
  1. NEXAVAR [Suspect]
     Active Substance: SORAFENIB
     Indication: HEPATIC CANCER
     Dosage: 400MG IN THE MORNING AND 200MG IN THE EVENING
     Route: 048
     Dates: end: 20190730
  2. NEXAVAR [Suspect]
     Active Substance: SORAFENIB
     Indication: METASTASES TO LUNG
     Dosage: UNK
     Route: 048
  3. STIVARGA [Suspect]
     Active Substance: REGORAFENIB
     Indication: HEPATIC CANCER
     Dosage: 60 MG, QD
     Route: 048
     Dates: start: 20190731
  4. NEXAVAR [Suspect]
     Active Substance: SORAFENIB
     Indication: HEPATIC CANCER
     Dosage: 400 MG, BID
     Route: 048
     Dates: start: 201404

REACTIONS (5)
  - Tumour embolism [None]
  - Alpha 1 foetoprotein increased [Recovered/Resolved]
  - Off label use [None]
  - Hepatic cancer [Recovered/Resolved]
  - Alpha 1 foetoprotein increased [Recovered/Resolved]

NARRATIVE: CASE EVENT DATE: 201606
